FAERS Safety Report 15218223 (Version 2)
Quarter: 2018Q3

REPORT INFORMATION
  Report Type: Spontaneous
  Country: EG (occurrence: EG)
  Receive Date: 20180730
  Receipt Date: 20180907
  Transmission Date: 20181010
  Serious: Yes (Hospitalization, Other)
  Sender: FDA-Public Use
  Company Number: EG-BRISTOL-MYERS SQUIBB COMPANY-BMS-2018-069285

PATIENT
  Age: 54 Year
  Sex: Male
  Weight: 178 kg

DRUGS (1)
  1. OPDIVO [Suspect]
     Active Substance: NIVOLUMAB
     Indication: SQUAMOUS CELL CARCINOMA OF LUNG
     Dosage: 480 MG, Q4WK
     Route: 042
     Dates: start: 20180625

REACTIONS (3)
  - Immune system disorder [Unknown]
  - Thrombosis [Unknown]
  - Hallucination [Unknown]
